FAERS Safety Report 4616744-2 (Version None)
Quarter: 2005Q2

REPORT INFORMATION
  Report Type: 
  Country: None (occurrence: None)
  Receive Date: 20050311
  Receipt Date: 20041201
  Transmission Date: 20051028
  Serious: Yes (Other)
  Sender: FDA-Public Use
  Company Number: 2004-00875

PATIENT
  Age: 48 Year
  Sex: Female
  Weight: 85.4 kg

DRUGS (2)
  1. VELCADE [Suspect]
     Indication: MULTIPLE MYELOMA
     Dosage: 2.50 MG, IV BOLUS; 3.00 MG, IV BOLUS
     Route: 040
     Dates: start: 20040614, end: 20041115
  2. VELCADE [Suspect]
     Indication: MULTIPLE MYELOMA
     Dosage: 2.50 MG, IV BOLUS; 3.00 MG, IV BOLUS
     Route: 040
     Dates: start: 20041115

REACTIONS (1)
  - HYPOTENSION [None]
